FAERS Safety Report 5833861-X (Version None)
Quarter: 2008Q3

REPORT INFORMATION
  Report Type: 
  Country: None (occurrence: None)
  Receive Date: 20080731
  Receipt Date: 20080723
  Transmission Date: 20090109
  Serious: Yes (Hospitalization)
  Sender: FDA-Public Use
  Company Number: 031386

PATIENT
  Age: 10 Year
  Sex: Male

DRUGS (1)
  1. TRAZODONE HCL [Suspect]
     Dosage: 150 MG, QHS, ORAL
     Route: 048
     Dates: start: 20080505, end: 20080508

REACTIONS (3)
  - ADVERSE DRUG REACTION [None]
  - INTERCEPTED DRUG DISPENSING ERROR [None]
  - WRONG DRUG ADMINISTERED [None]
